FAERS Safety Report 23051480 (Version 1)
Quarter: 2023Q4

REPORT INFORMATION
  Report Type: Spontaneous
  Country: US (occurrence: US)
  Receive Date: 20231010
  Receipt Date: 20231010
  Transmission Date: 20240110
  Serious: Yes (Hospitalization, Other)
  Sender: FDA-Public Use
  Company Number: US-GSK-US2023GSK138322

PATIENT

DRUGS (4)
  1. TAFENOQUINE [Suspect]
     Active Substance: TAFENOQUINE
     Indication: Product used for unknown indication
     Dosage: UNK , 3 DOSES
  2. SULFAMETHOXAZOLE\TRIMETHOPRIM [Concomitant]
     Active Substance: SULFAMETHOXAZOLE\TRIMETHOPRIM
     Indication: Product used for unknown indication
     Dosage: UNK
  3. ATOVAQUONE + PROGUANIL [Concomitant]
     Indication: Product used for unknown indication
     Dosage: UNK
  4. IVERMECTIN [Concomitant]
     Active Substance: IVERMECTIN
     Indication: Product used for unknown indication
     Dosage: UNK

REACTIONS (12)
  - Intravascular haemolysis [Recovering/Resolving]
  - Methaemoglobinaemia [Recovering/Resolving]
  - Fatigue [Recovering/Resolving]
  - Headache [Recovering/Resolving]
  - Dyspnoea exertional [Recovering/Resolving]
  - Jaundice [Recovering/Resolving]
  - Ocular icterus [Recovering/Resolving]
  - Cyanosis [Recovering/Resolving]
  - Condition aggravated [Recovering/Resolving]
  - Depressed level of consciousness [Recovering/Resolving]
  - Hypoxia [Recovering/Resolving]
  - Dyspnoea [Recovering/Resolving]
